FAERS Safety Report 5151420-1 (Version None)
Quarter: 2006Q4

REPORT INFORMATION
  Report Type: 
  Country: None (occurrence: None)
  Receive Date: 20061115
  Receipt Date: 20060915
  Transmission Date: 20070319
  Serious: Yes (Death, Disabling)
  Sender: FDA-Public Use
  Company Number: PHBS2006JP14422

PATIENT
  Age: 59 Year
  Sex: Male

DRUGS (3)
  1. GLEEVEC [Suspect]
     Indication: BLAST CRISIS IN MYELOGENOUS LEUKAEMIA
     Dosage: 600 MG/DAY
     Route: 048
     Dates: start: 20050901, end: 20050922
  2. GLEEVEC [Suspect]
     Dosage: 600 MG/DAY
     Route: 048
     Dates: start: 20051010, end: 20051026
  3. GLEEVEC [Suspect]
     Dosage: 400 MG/DAY
     Route: 048
     Dates: start: 20051104

REACTIONS (4)
  - ARTERIOSCLEROSIS OBLITERANS [None]
  - EXTREMITY NECROSIS [None]
  - FOOT AMPUTATION [None]
  - PERIPHERAL COLDNESS [None]
